FAERS Safety Report 5063483-2 (Version None)
Quarter: 2006Q3

REPORT INFORMATION
  Report Type: 
  Country: None (occurrence: None)
  Receive Date: 20060727
  Receipt Date: 20060712
  Transmission Date: 20061208
  Serious: Yes (Disabling)
  Sender: FDA-Public Use
  Company Number: DE-GLAXOSMITHKLINE-D0050309A

PATIENT
  Age: 63 Year
  Sex: Female

DRUGS (5)
  1. QUILONUM RETARD [Suspect]
     Indication: BIPOLAR DISORDER
     Dosage: 450MG TWICE PER DAY
     Route: 048
  2. ELMENDOS [Suspect]
     Indication: BIPOLAR DISORDER
     Dosage: 200MG PER DAY
     Route: 048
     Dates: start: 20040101
  3. ESCITALOPRAM OXALATE [Concomitant]
     Indication: BIPOLAR DISORDER
     Dosage: 15MG PER DAY
     Route: 048
     Dates: start: 20050101
  4. MIRTAZAPINE [Concomitant]
     Indication: BIPOLAR DISORDER
     Dosage: 30MG PER DAY
     Route: 048
     Dates: start: 20050101
  5. NEUROCIL [Concomitant]
     Indication: BIPOLAR DISORDER
     Route: 048

REACTIONS (4)
  - BLOOD CREATININE INCREASED [None]
  - BLOOD UREA INCREASED [None]
  - NEPHRITIS INTERSTITIAL [None]
  - RENAL FAILURE [None]
